FAERS Safety Report 5599667-4 (Version None)
Quarter: 2008Q1

REPORT INFORMATION
  Report Type: 
  Country: None (occurrence: None)
  Receive Date: 20080123
  Receipt Date: 20080111
  Transmission Date: 20080703
  Serious: Yes (Hospitalization)
  Sender: FDA-Public Use
  Company Number: FR-BRISTOL-MYERS SQUIBB COMPANY-14046981

PATIENT
  Age: 50 Year
  Sex: Female

DRUGS (6)
  1. GLUCOPHAGE [Suspect]
     Indication: TYPE 2 DIABETES MELLITUS
     Dates: start: 20070401
  2. COAPROVEL TABS [Suspect]
     Indication: HYPERTENSION
     Dosage: 1 DOSAGE FORM = 300 MG/12.5 MG.
     Route: 048
     Dates: start: 20040401
  3. ACOMPLIA [Suspect]
     Indication: OBESITY
     Route: 048
     Dates: start: 20070425
  4. AMARYL [Suspect]
     Indication: TYPE 2 DIABETES MELLITUS
     Route: 048
     Dates: start: 20060301
  5. LEXOMIL [Suspect]
     Indication: ANXIETY
     Route: 048
     Dates: start: 20040305, end: 20070501
  6. ACTOS [Suspect]
     Indication: TYPE 2 DIABETES MELLITUS
     Route: 048
     Dates: start: 20070401

REACTIONS (5)
  - ANAEMIA [None]
  - DIABETES MELLITUS INADEQUATE CONTROL [None]
  - KETOACIDOSIS [None]
  - PYELONEPHRITIS [None]
  - WEIGHT INCREASED [None]
